FAERS Safety Report 5872640-4 (Version None)
Quarter: 2008Q3

REPORT INFORMATION
  Report Type: 
  Country: None (occurrence: None)
  Receive Date: 20080905
  Receipt Date: 20080903
  Transmission Date: 20090109
  Serious: Yes (Other)
  Sender: FDA-Public Use
  Company Number: US-ASTRAZENECA-2008UW18149

PATIENT
  Age: 866 Month
  Sex: Male
  Weight: 99.8 kg

DRUGS (8)
  1. CRESTOR [Suspect]
     Indication: BLOOD CHOLESTEROL INCREASED
     Dosage: 10 MG
     Route: 048
     Dates: start: 20070101
  2. AMIODARONE HCL [Concomitant]
     Dosage: 300 MG
  3. ALDACTONE [Concomitant]
     Dosage: 25 MG
  4. LASIX [Concomitant]
     Dosage: 20 MG
  5. COREG [Concomitant]
     Dosage: 40 MG
  6. LISINOPRIL [Concomitant]
     Dosage: 20 MG
  7. COUMADIN [Concomitant]
     Dosage: 1.25-2.50
  8. SYNTHROID [Concomitant]

REACTIONS (2)
  - ASTHENIA [None]
  - RENAL IMPAIRMENT [None]
